FAERS Safety Report 14731578 (Version 1)
Quarter: 2018Q2

REPORT INFORMATION
  Report Type: Spontaneous
  Country: US (occurrence: US)
  Receive Date: 20180407
  Receipt Date: 20180407
  Transmission Date: 20180711
  Serious: No
  Sender: FDA-Public Use
  Company Number: US-TORRENT-00002695

PATIENT
  Sex: Female

DRUGS (1)
  1. FELODIPINE TABLET, EXTENDED RELEASE [Suspect]
     Active Substance: FELODIPINE
     Indication: PRODUCT USED FOR UNKNOWN INDICATION

REACTIONS (2)
  - Foreign body in respiratory tract [Unknown]
  - Dysgeusia [Unknown]
